FAERS Safety Report 21316244 (Version 1)
Quarter: 2022Q3

REPORT INFORMATION
  Report Type: Spontaneous
  Country: FR (occurrence: FR)
  Receive Date: 20220910
  Receipt Date: 20220910
  Transmission Date: 20221026
  Serious: Yes (Other)
  Sender: FDA-Public Use
  Company Number: None

PATIENT
  Age: 60 Year
  Sex: Male
  Weight: 76 kg

DRUGS (2)
  1. LOVENOX [Suspect]
     Active Substance: ENOXAPARIN SODIUM
     Indication: Prophylaxis
     Dosage: 400 IU, QD
     Route: 058
     Dates: start: 20220216
  2. AMOXICILLIN [Suspect]
     Active Substance: AMOXICILLIN
     Indication: Streptococcal endocarditis
     Dosage: 12 G/J
     Route: 042
     Dates: start: 20220211, end: 20220227

REACTIONS (2)
  - Pancytopenia [Recovered/Resolved]
  - Hepatic enzyme increased [Recovered/Resolved]

NARRATIVE: CASE EVENT DATE: 20220217
